FAERS Safety Report 20090326 (Version 2)
Quarter: 2021Q4

REPORT INFORMATION
  Report Type: Report from Study
  Country: SG (occurrence: SG)
  Receive Date: 20211119
  Receipt Date: 20211125
  Transmission Date: 20220303
  Serious: Yes (Hospitalization)
  Sender: FDA-Public Use
  Company Number: SG-JNJFOC-20211129493

PATIENT
  Age: 45 Year
  Sex: Female
  Weight: 100.8 kg

DRUGS (8)
  1. SIMPONI [Suspect]
     Active Substance: GOLIMUMAB
     Indication: Spondylitis
     Route: 042
     Dates: start: 20200311
  2. ASCORBIC ACID [Concomitant]
     Active Substance: ASCORBIC ACID
     Dosage: ASCORBIC ACID (VITAMIN C) TABLET PO 500 MG FOR 28 DAYS
  3. CELECOXIB [Concomitant]
     Active Substance: CELECOXIB
     Dosage: PO
  4. AMOXICILLIN\CLAVULANATE POTASSIUM [Concomitant]
     Active Substance: AMOXICILLIN\CLAVULANATE POTASSIUM
     Dosage: (AMOXICILLIN 875MG, CLAVULANIC ACID 125MG) PO 1 TABLET
  5. OMEPRAZOLE [Concomitant]
     Active Substance: OMEPRAZOLE
     Dosage: PO
  6. ACETAMINOPHEN [Concomitant]
     Active Substance: ACETAMINOPHEN
     Dosage: PO
  7. PREGABALIN [Concomitant]
     Active Substance: PREGABALIN
     Dosage: PO
  8. DIPHENHYDRAMINE HYDROCHLORIDE [Concomitant]
     Active Substance: DIPHENHYDRAMINE HYDROCHLORIDE
     Dosage: ONCE GIVEN 30 MINUTES BEFORE IV GOLIMUMAB

REACTIONS (3)
  - Abdominal wall abscess [Recovered/Resolved]
  - Off label use [Unknown]
  - Product use issue [Unknown]

NARRATIVE: CASE EVENT DATE: 20200311
